FAERS Safety Report 24965847 (Version 2)
Quarter: 2025Q1

REPORT INFORMATION
  Report Type: Report from Study
  Country: US (occurrence: US)
  Receive Date: 20250213
  Receipt Date: 20250214
  Transmission Date: 20250409
  Serious: Yes (Death, Hospitalization)
  Sender: EISAI
  Company Number: US-Eisai-EC-2025-184104

PATIENT
  Age: 77 Year
  Sex: Male
  Weight: 63.5 kg

DRUGS (1)
  1. LEQEMBI [Suspect]
     Active Substance: LECANEMAB-IRMB
     Indication: Dementia Alzheimer^s type

REACTIONS (8)
  - Respiratory distress [Fatal]
  - Mental status changes [Fatal]
  - Urinary tract obstruction [Fatal]
  - Acute kidney injury [Fatal]
  - Lactic acidosis [Fatal]
  - Troponin increased [Fatal]
  - Metabolic encephalopathy [Fatal]
  - Hyperammonaemia [Fatal]

NARRATIVE: CASE EVENT DATE: 20250201
